FAERS Safety Report 16257604 (Version 2)
Quarter: 2019Q2

REPORT INFORMATION
  Report Type: Report from Study
  Country: ES (occurrence: ES)
  Receive Date: 20190430
  Receipt Date: 20190529
  Transmission Date: 20190711
  Serious: Yes (Hospitalization, Other)
  Sender: FDA-Public Use
  Company Number: PHHY2019ES094837

PATIENT
  Age: 9 Year
  Sex: Female
  Weight: 27.5 kg

DRUGS (2)
  1. LDK378 [Suspect]
     Active Substance: CERITINIB
     Indication: NEUROBLASTOMA
     Dosage: 300 MG, UNK
     Route: 048
     Dates: start: 20170410, end: 20190416
  2. LDK378 [Suspect]
     Active Substance: CERITINIB
     Dosage: UNK
     Route: 065
     Dates: start: 20190502

REACTIONS (7)
  - Back pain [Recovered/Resolved]
  - Dyspnoea [Recovered/Resolved]
  - Pneumonia mycoplasmal [Recovered/Resolved]
  - Pericarditis [Recovered/Resolved]
  - Metastases to bone [Unknown]
  - Electrocardiogram ST segment elevation [Recovered/Resolved]
  - Pericardial effusion [Recovered/Resolved]

NARRATIVE: CASE EVENT DATE: 20190416
